FAERS Safety Report 6578622-1 (Version None)
Quarter: 2010Q1

REPORT INFORMATION
  Report Type: 
  Country: None (occurrence: None)
  Receive Date: 20100211
  Receipt Date: 20100203
  Transmission Date: 20100710
  Serious: Yes (Other)
  Sender: FDA-Public Use
  Company Number: US-BAYER-201011299BCC

PATIENT
  Age: 65 Year
  Sex: Female
  Weight: 51 kg

DRUGS (2)
  1. ASPIRIN [Suspect]
     Indication: ARTHRALGIA
     Dosage: SHE INGESTED 18 TABLETS
     Route: 048
     Dates: start: 19740101, end: 19850101
  2. ASPIRIN [Suspect]
     Indication: DRUG USE FOR UNKNOWN INDICATION
     Route: 048

REACTIONS (2)
  - ABDOMINAL DISCOMFORT [None]
  - THROMBOSIS [None]
